FAERS Safety Report 13866128 (Version 1)
Quarter: 2017Q3

REPORT INFORMATION
  Report Type: Spontaneous
  Country: US (occurrence: US)
  Receive Date: 20170814
  Receipt Date: 20170814
  Transmission Date: 20171127
  Serious: No
  Sender: FDA-Public Use
  Company Number: US-ROCHE-1910367

PATIENT
  Age: 57 Year
  Sex: Female
  Weight: 53.57 kg

DRUGS (2)
  1. ACTEMRA [Suspect]
     Active Substance: TOCILIZUMAB
     Dosage: EVERY 4 TO 5 WEEKS ;INJECTION
     Route: 042
     Dates: start: 20170117
  2. ACTEMRA [Suspect]
     Active Substance: TOCILIZUMAB
     Indication: TEMPORAL ARTERITIS
     Dosage: EVERY 4 TO 5 WEEKS ;ONGOING: NO
     Route: 042
     Dates: start: 20141008, end: 20170117

REACTIONS (6)
  - Skin ulcer [Recovered/Resolved]
  - Dermatitis [Unknown]
  - Weight bearing difficulty [Recovered/Resolved]
  - Muscle spasms [Recovered/Resolved]
  - Muscle spasms [Recovered/Resolved]
  - Pain [Recovered/Resolved]

NARRATIVE: CASE EVENT DATE: 20160831
